FAERS Safety Report 24692050 (Version 1)
Quarter: 2024Q4

REPORT INFORMATION
  Report Type: Report from Study
  Country: KR (occurrence: KR)
  Receive Date: 20241203
  Receipt Date: 20241203
  Transmission Date: 20250115
  Serious: Yes (Other)
  Sender: TAKEDA
  Company Number: KR-TAKEDA-2024TUS120111

PATIENT
  Age: 71 Year
  Sex: Male

DRUGS (1)
  1. BRIGATINIB [Suspect]
     Active Substance: BRIGATINIB
     Indication: Non-small cell lung cancer
     Dosage: 180 MILLIGRAM, QD
     Dates: start: 20240413, end: 20241119

REACTIONS (1)
  - Non-small cell lung cancer [Unknown]

NARRATIVE: CASE EVENT DATE: 20241119
